FAERS Safety Report 18985685 (Version 1)
Quarter: 2021Q1

REPORT INFORMATION
  Report Type: Report from Study
  Country: CO (occurrence: CO)
  Receive Date: 20210309
  Receipt Date: 20210309
  Transmission Date: 20210420
  Serious: Yes (Other)
  Sender: FDA-Public Use
  Company Number: NVSC2021CO046648

PATIENT
  Sex: Female
  Weight: 89 kg

DRUGS (2)
  1. AMLODIPINE [Concomitant]
     Active Substance: AMLODIPINE BESYLATE
     Indication: HYPERTENSION
     Dosage: 5 MG, Q12H (10 YEARS AGO)
     Route: 048
  2. LOSARTAN. [Suspect]
     Active Substance: LOSARTAN
     Indication: HYPERTENSION
     Dosage: 50 MG, Q12H (10 YEARS AGO)
     Route: 048

REACTIONS (2)
  - Breast cancer metastatic [Unknown]
  - HER2 positive breast cancer [Unknown]

NARRATIVE: CASE EVENT DATE: 2017
